FAERS Safety Report 5012642-3 (Version None)
Quarter: 2006Q2

REPORT INFORMATION
  Report Type: 
  Country: None (occurrence: None)
  Receive Date: 20060411
  Receipt Date: 20060102
  Transmission Date: 20061013
  Serious: Yes (Other)
  Sender: FDA-Public Use
  Company Number: A03200600037

PATIENT
  Age: 30 Year
  Sex: Female
  Weight: 72.5755 kg

DRUGS (1)
  1. UROXATRAL [Suspect]
     Indication: DYSURIA
     Dosage: 10 MG OD ORAL
     Route: 048
     Dates: start: 20051229, end: 20051230

REACTIONS (4)
  - ABASIA [None]
  - DIZZINESS [None]
  - LOSS OF CONSCIOUSNESS [None]
  - OFF LABEL USE [None]
